FAERS Safety Report 11774075 (Version 2)
Quarter: 2015Q4

REPORT INFORMATION
  Report Type: Spontaneous
  Country: JP (occurrence: JP)
  Receive Date: 20151124
  Receipt Date: 20151207
  Transmission Date: 20160304
  Serious: Yes (Death)
  Sender: FDA-Public Use
  Company Number: JP-009507513-1507JPN010152

PATIENT
  Age: 72 Year
  Sex: Male

DRUGS (2)
  1. TARGOCID [Concomitant]
     Active Substance: TEICOPLANIN
     Dosage: DAILY DOSAGE UNKNOWN
     Route: 065
  2. CUBICIN [Suspect]
     Active Substance: DAPTOMYCIN
     Dosage: 6 MG/KG, UNK
     Route: 041
     Dates: start: 20150710

REACTIONS (1)
  - Adverse event [Fatal]
